FAERS Safety Report 12488503 (Version 1)
Quarter: 2016Q2

REPORT INFORMATION
  Report Type: Report from Study
  Country: JP (occurrence: JP)
  Receive Date: 20160622
  Receipt Date: 20160622
  Transmission Date: 20160815
  Serious: Yes (Hospitalization)
  Sender: FDA-Public Use
  Company Number: JP-SA-2016SA112870

PATIENT
  Age: 64 Year
  Sex: Female

DRUGS (5)
  1. NESP [Suspect]
     Active Substance: DARBEPOETIN ALFA
     Route: 065
     Dates: start: 20141203, end: 20150722
  2. NESP [Suspect]
     Active Substance: DARBEPOETIN ALFA
     Route: 065
     Dates: start: 20150909, end: 20150930
  3. NESP [Suspect]
     Active Substance: DARBEPOETIN ALFA
     Route: 065
     Dates: start: 20151007, end: 20151014
  4. NESP [Suspect]
     Active Substance: DARBEPOETIN ALFA
     Route: 065
     Dates: start: 20150729, end: 20150902
  5. PHOSBLOCK [Suspect]
     Active Substance: FERRIC HYDROXIDE
     Route: 048
     Dates: end: 20151215

REACTIONS (1)
  - Haemorrhagic stroke [Recovering/Resolving]

NARRATIVE: CASE EVENT DATE: 20151017
